FAERS Safety Report 5633692-X (Version None)
Quarter: 2008Q1

REPORT INFORMATION
  Report Type: 
  Country: None (occurrence: None)
  Receive Date: 20080131
  Receipt Date: 20071119
  Transmission Date: 20080703
  Serious: No
  Sender: FDA-Public Use
  Company Number: 163-21880-07111124

PATIENT
  Age: 90 Year
  Sex: Male

DRUGS (4)
  1. REVLIMID [Suspect]
     Indication: MULTIPLE MYELOMA
     Dosage: X21 DAYS/28 DAYS, ORAL ; X21 DAYS/28 DAYS, ORAL ; X21 DAYS/28 DAYS, ORAL ; X21 DAYS / 28 DAYS, ORAL
     Route: 048
     Dates: start: 20070101, end: 20070201
  2. REVLIMID [Suspect]
     Indication: MULTIPLE MYELOMA
     Dosage: X21 DAYS/28 DAYS, ORAL ; X21 DAYS/28 DAYS, ORAL ; X21 DAYS/28 DAYS, ORAL ; X21 DAYS / 28 DAYS, ORAL
     Route: 048
     Dates: start: 20070901, end: 20071001
  3. REVLIMID [Suspect]
     Indication: MULTIPLE MYELOMA
     Dosage: X21 DAYS/28 DAYS, ORAL ; X21 DAYS/28 DAYS, ORAL ; X21 DAYS/28 DAYS, ORAL ; X21 DAYS / 28 DAYS, ORAL
     Route: 048
     Dates: start: 20070201
  4. REVLIMID [Suspect]
     Indication: MULTIPLE MYELOMA
     Dosage: X21 DAYS/28 DAYS, ORAL ; X21 DAYS/28 DAYS, ORAL ; X21 DAYS/28 DAYS, ORAL ; X21 DAYS / 28 DAYS, ORAL
     Route: 048
     Dates: start: 20071101

REACTIONS (1)
  - UNEVALUABLE EVENT [None]
